FAERS Safety Report 8711351 (Version 2)
Quarter: 2013Q2

REPORT INFORMATION
  Report Type: Report from Study
  Country: DE (occurrence: DE)
  Receive Date: 20120807
  Receipt Date: 20130530
  Transmission Date: 20140414
  Serious: Yes (Hospitalization)
  Sender: FDA-Public Use
  Company Number: DE-ROCHE-1097213

PATIENT
  Sex: Male

DRUGS (6)
  1. RITUXIMAB [Suspect]
     Indication: RHEUMATOID ARTHRITIS
     Route: 065
     Dates: start: 200611, end: 20101215
  2. METHOTREXAT [Suspect]
     Indication: RHEUMATOID ARTHRITIS
     Route: 048
     Dates: start: 200005, end: 201107
  3. DECORTIN [Concomitant]
     Indication: RHEUMATOID ARTHRITIS
     Dosage: 5 MG AND 7.5 MG PER DAY WERE GIVEN IN ALTERNATION
     Route: 065
     Dates: start: 201001, end: 201107
  4. ARCOXIA [Concomitant]
     Route: 065
     Dates: start: 200901, end: 201107
  5. RAMIPRIL [Concomitant]
     Route: 065
     Dates: start: 200810
  6. FOLIC ACID [Concomitant]
     Route: 065
     Dates: start: 200005, end: 201107

REACTIONS (1)
  - Plasma cell myeloma [Not Recovered/Not Resolved]
